FAERS Safety Report 7843305-4 (Version None)
Quarter: 2011Q4

REPORT INFORMATION
  Report Type: 
  Country: None (occurrence: None)
  Receive Date: 20111025
  Receipt Date: 20111018
  Transmission Date: 20120403
  Serious: Yes (Hospitalization)
  Sender: FDA-Public Use
  Company Number: DE-SANOFI-AVENTIS-2011SA069040

PATIENT
  Age: 58 Year
  Sex: Male
  Weight: 61 kg

DRUGS (6)
  1. THERAPEUTIC RADIOPHARMACEUTICALS [Suspect]
     Dosage: DOSE 1.8 GYSCHEDULE DOSE: 45 GY TOTAL DOSE, 1.8 GY ON D1-33 W/O WEEKENDS + OPTIONAL BOOST.
     Dates: start: 20100628
  2. CAPECITABINE [Suspect]
     Indication: RECTAL CANCER
     Route: 065
     Dates: start: 20100518, end: 20100518
  3. THERAPEUTIC RADIOPHARMACEUTICALS [Suspect]
     Indication: RECTAL CANCER
     Dates: start: 20100518, end: 20100518
  4. OXALIPLATIN [Suspect]
     Indication: RECTAL CANCER
     Route: 065
     Dates: start: 20100518, end: 20100518
  5. OXALIPLATIN [Suspect]
     Dosage: SCHEDULE DOSE 130 MG/M2 I.V D1 OF 3 WEEK CYCLE
     Route: 042
     Dates: start: 20101206
  6. CAPECITABINE [Suspect]
     Dosage: SCHEDULE DOSE 1000 MG/M2 PO BID D1-D15 OF 3 WEEK CYCLE
     Route: 048
     Dates: start: 20101209

REACTIONS (1)
  - URINARY RETENTION [None]
